FAERS Safety Report 8884895 (Version 4)
Quarter: 2013Q3

REPORT INFORMATION
  Report Type: Report from Study
  Country: US (occurrence: US)
  Receive Date: 20121102
  Receipt Date: 20130827
  Transmission Date: 20140515
  Serious: Yes (Hospitalization, Other)
  Sender: FDA-Public Use
  Company Number: US-NAPPMUNDI-USA-2012-0095231

PATIENT
  Age: 38 Year
  Sex: Female

DRUGS (1)
  1. OXYCONTIN (NDA 22-272) [Suspect]
     Indication: PAIN
     Dosage: 20 MG, BID
     Route: 048
     Dates: start: 201107

REACTIONS (6)
  - Neuropathy peripheral [Unknown]
  - Muscular weakness [Unknown]
  - Tongue disorder [Unknown]
  - Sensory loss [Unknown]
  - Multiple sclerosis relapse [Not Recovered/Not Resolved]
  - Grip strength decreased [Unknown]
